FAERS Safety Report 19153523 (Version 2)
Quarter: 2021Q2

REPORT INFORMATION
  Report Type: Spontaneous
  Country: US (occurrence: US)
  Receive Date: 20210419
  Receipt Date: 20210514
  Transmission Date: 20210717
  Serious: Yes (Other)
  Sender: FDA-Public Use
  Company Number: US-BAYER-2021-125132

PATIENT
  Age: 14 Year
  Sex: Male

DRUGS (2)
  1. KOGENATE FS [Suspect]
     Active Substance: ANTIHEMOPHILIC FACTOR, HUMAN RECOMBINANT
     Indication: FACTOR VIII DEFICIENCY
     Dosage: TOTAL AMOUNT OF KOGENATE PER DOSE 3000 UNITS/SLOW IV PUSH
     Route: 042
     Dates: start: 20210319
  2. KOGENATE FS [Suspect]
     Active Substance: ANTIHEMOPHILIC FACTOR, HUMAN RECOMBINANT
     Indication: FACTOR VIII DEFICIENCY
     Dosage: TOTAL AMOUNT OF KOGENATE PER DOSE 3000 UNITS/ SLOW IV PUSH
     Route: 042
     Dates: start: 20210319

REACTIONS (3)
  - Haemarthrosis [None]
  - Haemarthrosis [None]
  - Accident [None]

NARRATIVE: CASE EVENT DATE: 202105
